FAERS Safety Report 6525815-5 (Version None)
Quarter: 2010Q1

REPORT INFORMATION
  Report Type: 
  Country: None (occurrence: None)
  Receive Date: 20100104
  Receipt Date: 20091224
  Transmission Date: 20100710
  Serious: Yes (Hospitalization)
  Sender: FDA-Public Use
  Company Number: B0586047A

PATIENT
  Sex: Female

DRUGS (2)
  1. NABUCOX [Suspect]
     Dosage: 1G TWICE PER DAY
     Route: 048
     Dates: start: 20090629, end: 20090703
  2. OMEPRAZOLE [Suspect]
     Dosage: 10MG PER DAY
     Route: 048
     Dates: start: 20090629, end: 20090703

REACTIONS (3)
  - ERYTHEMA [None]
  - FACE OEDEMA [None]
  - PYREXIA [None]
